FAERS Safety Report 19014994 (Version 2)
Quarter: 2021Q1

REPORT INFORMATION
  Report Type: Report from Study
  Country: AU (occurrence: AU)
  Receive Date: 20210316
  Receipt Date: 20210325
  Transmission Date: 20210420
  Serious: Yes (Hospitalization)
  Sender: FDA-Public Use
  Company Number: AU-EMD SERONO-9225512

PATIENT
  Age: 46 Year
  Sex: Male

DRUGS (1)
  1. MAVENCLAD [Suspect]
     Active Substance: CLADRIBINE
     Indication: MULTIPLE SCLEROSIS
     Dosage: YEAR ONE WEEK ONE THERAPY
     Dates: start: 20200913

REACTIONS (4)
  - Vertigo [Unknown]
  - Fatigue [Unknown]
  - Nasopharyngitis [Unknown]
  - Pneumonia [Unknown]

NARRATIVE: CASE EVENT DATE: 202011
